FAERS Safety Report 14575074 (Version 1)
Quarter: 2018Q1

REPORT INFORMATION
  Report Type: Spontaneous
  Country: US (occurrence: US)
  Receive Date: 20180227
  Receipt Date: 20180227
  Transmission Date: 20180509
  Serious: No
  Sender: FDA-Public Use
  Company Number: US-ROCHE-2011302

PATIENT
  Sex: Male

DRUGS (3)
  1. XOLAIR [Suspect]
     Active Substance: OMALIZUMAB
     Indication: PRODUCT USED FOR UNKNOWN INDICATION
     Dosage: ON THERAPY SINCE 2 YEARS
     Route: 058
     Dates: start: 20161227
  2. PREDNISONE. [Concomitant]
     Active Substance: PREDNISONE
  3. THEOPHYLLINE [Concomitant]
     Active Substance: THEOPHYLLINE ANHYDROUS

REACTIONS (3)
  - Throat tightness [Unknown]
  - Weight increased [Unknown]
  - Pharyngeal oedema [Unknown]
